FAERS Safety Report 6131336-4 (Version None)
Quarter: 2009Q1

REPORT INFORMATION
  Report Type: 
  Country: None (occurrence: None)
  Receive Date: 20090325
  Receipt Date: 20080321
  Transmission Date: 20090719
  Serious: No
  Sender: FDA-Public Use
  Company Number: US-BRISTOL-MYERS SQUIBB COMPANY-14123384

PATIENT
  Age: 66 Year
  Sex: Male

DRUGS (1)
  1. ERBITUX [Suspect]
     Dosage: TREATED FROM JUL-2006 TO JAN-2007.
     Dates: start: 20080220, end: 20080220

REACTIONS (3)
  - CHILLS [None]
  - INFUSION SITE ERYTHEMA [None]
  - OXYGEN SATURATION DECREASED [None]
